FAERS Safety Report 9703399 (Version 1)
Quarter: 2013Q4

REPORT INFORMATION
  Report Type: Spontaneous
  Country: US (occurrence: US)
  Receive Date: 20131122
  Receipt Date: 20131122
  Transmission Date: 20140711
  Serious: Yes (Hospitalization, Other)
  Sender: FDA-Public Use
  Company Number: PHEH2013US024330

PATIENT
  Sex: Male

DRUGS (3)
  1. DIOVAN [Suspect]
     Dosage: 320 MG, UNK
     Dates: start: 20131016
  2. LIPITOR [Concomitant]
     Dosage: 40 MG, QD (BUT CUTS THE PILL IN HALF)
  3. AGGRENOX [Concomitant]

REACTIONS (3)
  - Hypoaesthesia [Unknown]
  - Paraesthesia [Unknown]
  - Swelling [Unknown]
